FAERS Safety Report 11118312 (Version 3)
Quarter: 2016Q4

REPORT INFORMATION
  Report Type: Spontaneous
  Country: FR (occurrence: FR)
  Receive Date: 20150518
  Receipt Date: 20161014
  Transmission Date: 20170206
  Serious: Yes (Hospitalization, Other)
  Sender: FDA-Public Use
  Company Number: FR-ABBVIE-15K-056-1392577-00

PATIENT
  Age: 25 Year
  Sex: Male

DRUGS (9)
  1. REMICADE [Suspect]
     Active Substance: INFLIXIMAB
     Indication: CROHN^S DISEASE
     Route: 065
     Dates: start: 20050412
  2. ENTOCORT [Suspect]
     Active Substance: BUDESONIDE
     Indication: PRODUCT USED FOR UNKNOWN INDICATION
     Route: 065
     Dates: start: 200001
  3. IMUREL [Suspect]
     Active Substance: AZATHIOPRINE SODIUM
     Indication: PRODUCT USED FOR UNKNOWN INDICATION
     Route: 065
  4. REMICADE [Suspect]
     Active Substance: INFLIXIMAB
     Indication: SPONDYLITIS
  5. HUMIRA [Suspect]
     Active Substance: ADALIMUMAB
     Indication: CROHN^S DISEASE
     Route: 058
     Dates: start: 20050412, end: 2010
  6. HUMIRA [Suspect]
     Active Substance: ADALIMUMAB
     Route: 058
     Dates: start: 201109
  7. ENTOCORT [Suspect]
     Active Substance: BUDESONIDE
     Route: 065
     Dates: start: 2010
  8. HUMIRA [Suspect]
     Active Substance: ADALIMUMAB
     Indication: SPONDYLITIS
     Route: 058
     Dates: start: 201009, end: 201009
  9. RIFATER [Suspect]
     Active Substance: ISONIAZID\PYRAZINAMIDE\RIFAMPIN
     Indication: PRODUCT USED FOR UNKNOWN INDICATION
     Route: 065
     Dates: start: 20051212

REACTIONS (28)
  - Pulmonary tuberculosis [Recovered/Resolved]
  - Oropharyngeal candidiasis [Unknown]
  - Anal abscess [Unknown]
  - Enterovesical fistula [Recovered/Resolved]
  - Clostridium difficile infection [Recovered/Resolved]
  - Anal fistula [Unknown]
  - Swelling face [Unknown]
  - Procedural pain [Unknown]
  - Staphylococcal infection [Unknown]
  - Pulmonary embolism [Unknown]
  - Lymphadenopathy [Recovering/Resolving]
  - Joint range of motion decreased [Unknown]
  - Painful respiration [Unknown]
  - Drug intolerance [Unknown]
  - Thoracotomy [Unknown]
  - Rhinitis [Unknown]
  - Tinnitus [Unknown]
  - General physical health deterioration [Unknown]
  - Escherichia infection [Unknown]
  - Drug ineffective [Not Recovered/Not Resolved]
  - Chest pain [Unknown]
  - Gastrointestinal candidiasis [Unknown]
  - Enterovesical fistula [Unknown]
  - Skin exfoliation [Not Recovered/Not Resolved]
  - Lymphadenopathy [Recovering/Resolving]
  - Rectal abscess [Unknown]
  - Skin lesion [Unknown]
  - Vertigo [Unknown]

NARRATIVE: CASE EVENT DATE: 20050508
